FAERS Safety Report 7786424-3 (Version None)
Quarter: 2011Q3

REPORT INFORMATION
  Report Type: 
  Country: None (occurrence: None)
  Receive Date: 20110928
  Receipt Date: 20110928
  Transmission Date: 20111222
  Serious: No
  Sender: FDA-Public Use
  Company Number: None

PATIENT
  Age: 60 Year
  Sex: Female
  Weight: 79.3795 kg

DRUGS (1)
  1. PREMARIN [Suspect]
     Indication: VULVOVAGINAL DRYNESS
     Dosage: 1.0 GRAM TWICE WEEKLY VAGINAL INSERT
     Route: 067
     Dates: start: 20110601, end: 20110801

REACTIONS (2)
  - APPLICATION SITE PAIN [None]
  - PRODUCT QUALITY ISSUE [None]
